FAERS Safety Report 6180571-8 (Version None)
Quarter: 2009Q2

REPORT INFORMATION
  Report Type: 
  Country: None (occurrence: None)
  Receive Date: 20090504
  Receipt Date: 20090424
  Transmission Date: 20091009
  Serious: Yes (Other)
  Sender: FDA-Public Use
  Company Number: CHPA2009US10379

PATIENT
  Age: 84 Year
  Sex: Female
  Weight: 51.2 kg

DRUGS (2)
  1. BENEFIBER PLUS CALCIUM  WITH WHEAT DEXTRIN(NCH)(CALCIUM CARBONATE, WHE [Suspect]
     Indication: DIVERTICULITIS
     Dosage: UNK, UNK, ORAL
     Route: 048
  2. BENEFIBER W/WHEAT DEXTRIN (NCH)(WHEAT DEXTRIN) POWDER [Suspect]
     Indication: DIVERTICULITIS
     Dosage: UNK, UNK, ORAL
     Route: 048
     Dates: end: 20090101

REACTIONS (2)
  - DRUG INEFFECTIVE [None]
  - GASTRIC ANTRAL VASCULAR ECTASIA [None]
